FAERS Safety Report 6988987-4 (Version None)
Quarter: 2010Q3

REPORT INFORMATION
  Report Type: 
  Country: None (occurrence: None)
  Receive Date: 20100916
  Receipt Date: 20100908
  Transmission Date: 20110219
  Serious: Yes (Other)
  Sender: FDA-Public Use
  Company Number: CA-AMGEN-KDL437042

PATIENT
  Sex: Female

DRUGS (4)
  1. ENBREL [Suspect]
     Indication: RHEUMATOID ARTHRITIS
     Route: 058
     Dates: start: 20070928, end: 20100810
  2. PREDNISONE [Concomitant]
  3. METHOTREXATE [Concomitant]
  4. UNSPECIFIED ANTIHYPERTENSIVE AGENT [Concomitant]

REACTIONS (10)
  - AMNESIA [None]
  - AREFLEXIA [None]
  - CENTRAL NERVOUS SYSTEM LESION [None]
  - CHEST PAIN [None]
  - CLUMSINESS [None]
  - DYSPNOEA [None]
  - MUSCLE SPASMS [None]
  - PARAESTHESIA [None]
  - PHARYNGEAL DISORDER [None]
  - SLEEP DISORDER [None]
